FAERS Safety Report 8885357 (Version 1)
Quarter: 2012Q4

REPORT INFORMATION
  Report Type: Report from Study
  Country: CA (occurrence: CA)
  Receive Date: 20121102
  Receipt Date: 20121102
  Transmission Date: 20130627
  Serious: Yes (Other)
  Sender: FDA-Public Use
  Company Number: CA-ROCHE-CID000000002213507

PATIENT
  Sex: Female
  Weight: 79.45 kg

DRUGS (8)
  1. RITUXIMAB [Suspect]
     Indication: MYASTHENIA GRAVIS
     Dosage: Day 1, 8, 15 and 22
     Route: 042
     Dates: start: 20111221
  2. RITUXIMAB [Suspect]
     Dosage: Day 1  and 7
     Route: 042
     Dates: start: 20120309
  3. RITUXIMAB [Suspect]
     Route: 042
     Dates: start: 20120428
  4. MESTINON [Concomitant]
  5. PREDNISONE [Concomitant]
  6. CELLCEPT [Concomitant]
  7. ESTRADOT [Concomitant]
  8. B12 COMPLEX [Concomitant]

REACTIONS (4)
  - Atrial fibrillation [Not Recovered/Not Resolved]
  - Heart rate decreased [Not Recovered/Not Resolved]
  - Chest pain [Not Recovered/Not Resolved]
  - Weight decreased [Not Recovered/Not Resolved]
